FAERS Safety Report 15318739 (Version 1)
Quarter: 2018Q3

REPORT INFORMATION
  Report Type: Spontaneous
  Country: US (occurrence: US)
  Receive Date: 20180818
  Receipt Date: 20180818
  Transmission Date: 20181010
  Serious: Yes (Disabling)
  Sender: FDA-Public Use
  Company Number: None

PATIENT
  Age: 47 Year
  Sex: Female
  Weight: 69.75 kg

DRUGS (4)
  1. LEVOFLOXACIN. [Suspect]
     Active Substance: LEVOFLOXACIN
     Indication: EYE INFECTION
     Dosage: ?          QUANTITY:1 TABLET(S);?
     Route: 048
     Dates: start: 20160612, end: 20160620
  2. VITAMIN D [Concomitant]
     Active Substance: CHOLECALCIFEROL
  3. OMEGA SUPPLEMENT [Concomitant]
  4. VITAMIN B [Concomitant]
     Active Substance: VITAMIN B

REACTIONS (20)
  - Visual impairment [None]
  - Middle insomnia [None]
  - Tendon injury [None]
  - Muscle injury [None]
  - Arthralgia [None]
  - Neuropathy peripheral [None]
  - Fatigue [None]
  - Joint injury [None]
  - Back injury [None]
  - Immobile [None]
  - Musculoskeletal pain [None]
  - Neck pain [None]
  - Tinnitus [None]
  - Sleep disorder [None]
  - Palpitations [None]
  - Dysgeusia [None]
  - Joint swelling [None]
  - Back pain [None]
  - Pain in extremity [None]
  - Limb injury [None]

NARRATIVE: CASE EVENT DATE: 20160612
